FAERS Safety Report 8236875-8 (Version None)
Quarter: 2012Q1

REPORT INFORMATION
  Report Type: 
  Country: None (occurrence: None)
  Receive Date: 20120327
  Receipt Date: 20120316
  Transmission Date: 20120608
  Serious: No
  Sender: FDA-Public Use
  Company Number: US-BAYER-2012-026211

PATIENT
  Sex: Female

DRUGS (1)
  1. BEYAZ [Suspect]
     Indication: CONTRACEPTION
     Dosage: 3MG/0.02MG/0.451MG, 0.451
     Route: 048
     Dates: start: 20101018

REACTIONS (1)
  - VISUAL IMPAIRMENT [None]
